FAERS Safety Report 16521679 (Version 2)
Quarter: 2019Q3

REPORT INFORMATION
  Report Type: Report from Study
  Country: MX (occurrence: MX)
  Receive Date: 20190702
  Receipt Date: 20190717
  Transmission Date: 20191004
  Serious: Yes (Other)
  Sender: FDA-Public Use
  Company Number: PHHY2019MX151643

PATIENT
  Sex: Female
  Weight: 60 kg

DRUGS (3)
  1. SODIME [Concomitant]
     Indication: PRODUCT USED FOR UNKNOWN INDICATION
     Route: 048
  2. TRILEPTAL [Suspect]
     Active Substance: OXCARBAZEPINE
     Indication: CONVULSIONS LOCAL
     Dosage: 1 DF, Q12H
     Route: 048
     Dates: start: 201810
  3. PYLOPAC [Concomitant]
     Indication: PRODUCT USED FOR UNKNOWN INDICATION
     Route: 048

REACTIONS (9)
  - Helicobacter infection [Recovered/Resolved]
  - Gastritis [Recovered/Resolved]
  - Fatigue [Recovered/Resolved]
  - Dizziness [Recovered/Resolved]
  - Blood sodium decreased [Recovered/Resolved]
  - Gastrointestinal inflammation [Recovered/Resolved]
  - Pigmentation disorder [Recovered/Resolved]
  - Ileus paralytic [Recovered/Resolved]
  - Photosensitivity reaction [Recovered/Resolved]
